FAERS Safety Report 6964876-6 (Version None)
Quarter: 2010Q3

REPORT INFORMATION
  Report Type: 
  Country: None (occurrence: None)
  Receive Date: 20100903
  Receipt Date: 20100826
  Transmission Date: 20110219
  Serious: Yes (Hospitalization)
  Sender: FDA-Public Use
  Company Number: US-JNJFOC-20100809251

PATIENT
  Sex: Male
  Weight: 25.95 kg

DRUGS (7)
  1. REMICADE [Suspect]
     Indication: CROHN'S DISEASE
     Route: 042
  2. 5-ASA [Concomitant]
  3. BUDESONIDE [Concomitant]
  4. PREVACID [Concomitant]
     Route: 048
  5. ZOFRAN [Concomitant]
  6. SENNA [Concomitant]
  7. MULTIVITAMINS  WITH IRON [Concomitant]

REACTIONS (2)
  - CROHN'S DISEASE [None]
  - WEIGHT DECREASED [None]
